FAERS Safety Report 9352236 (Version 2)
Quarter: 2013Q2

REPORT INFORMATION
  Report Type: Spontaneous
  Country: MX (occurrence: MX)
  Receive Date: 20130617
  Receipt Date: 20130621
  Transmission Date: 20140414
  Serious: Yes (Other)
  Sender: FDA-Public Use
  Company Number: MX-ABBOTT-13P-107-1105452-00

PATIENT
  Age: 17 Year
  Sex: Female
  Weight: 48 kg

DRUGS (3)
  1. ULTANE [Suspect]
     Indication: SEDATION
     Dosage: 3-4%
     Route: 055
     Dates: start: 20130523, end: 20130523
  2. ULTANE [Suspect]
     Indication: SURGERY
  3. O2 3H5 [Concomitant]
     Indication: SEDATION
     Dosage: 100 %
     Route: 055
     Dates: start: 20130523, end: 20130523

REACTIONS (4)
  - Generalised erythema [Recovered/Resolved]
  - Rash [Recovered/Resolved]
  - Circumoral oedema [Recovered/Resolved]
  - Periorbital oedema [Recovered/Resolved]
